FAERS Safety Report 6609123 (Version 2)
Quarter: 2013Q1

REPORT INFORMATION
  Report Type: Spontaneous
  Country: GB (occurrence: GB)
  Receive Date: 20080408
  Receipt Date: 20130320
  Transmission Date: 20140127
  Serious: Yes (Hospitalization)
  Sender: FDA-Public Use
  Company Number: GB-JNJFOC-20080401148

PATIENT
  Age: 86 Year
  Sex: Male

DRUGS (2)
  1. IBUPROFEN [Suspect]
     Route: 048
  2. IBUPROFEN [Suspect]
     Indication: PAIN
     Route: 048
     Dates: end: 20060123

REACTIONS (7)
  - Barrett^s oesophagus [Recovering/Resolving]
  - Anaemia [Recovering/Resolving]
  - Lethargy [Recovering/Resolving]
  - Asthenia [Recovering/Resolving]
  - Gastritis erosive [Recovering/Resolving]
  - Gastric ulcer [Recovering/Resolving]
  - Melaena [Recovering/Resolving]
